FAERS Safety Report 24893341 (Version 1)
Quarter: 2025Q1

REPORT INFORMATION
  Report Type: Spontaneous
  Country: GB (occurrence: GB)
  Receive Date: 20250128
  Receipt Date: 20250128
  Transmission Date: 20250409
  Serious: Yes (Other)
  Sender: NOVO NORDISK
  Company Number: None

PATIENT
  Age: 55 Year
  Sex: Female
  Weight: 102 kg

DRUGS (3)
  1. RYBELSUS [Suspect]
     Active Substance: SEMAGLUTIDE
     Dosage: 14 MG, QD(TAKE ONE DAILY - TO BE TAKEN ON AN EMPTY STOMACH - TO TAKE 30MINS BEFORE ALL MEDICATIONS A
     Dates: start: 20241212
  2. RYBELSUS [Suspect]
     Active Substance: SEMAGLUTIDE
     Indication: Product used for unknown indication
     Dosage: 7 MG, QD(7 MG OD THEN IF TOLERATED TO 2 OD (14 MG ) AFTER ANOTHER 4 WEEKS ONE TO BE TAKEN AT THE SAM
     Dates: start: 20241017, end: 20241129
  3. SPIKEVAX [Concomitant]
     Active Substance: CX-046684
     Route: 030
     Dates: start: 20241007, end: 20241007

REACTIONS (2)
  - Liver function test abnormal [Unknown]
  - Abdominal discomfort [Unknown]
